FAERS Safety Report 9167888 (Version 1)
Quarter: 2013Q1

REPORT INFORMATION
  Report Type: Spontaneous
  Country: US (occurrence: None)
  Receive Date: 20130304
  Receipt Date: 20130304
  Transmission Date: 20140127
  Serious: Yes (Disabling)
  Sender: FDA-Public Use
  Company Number: 0220045

PATIENT
  Age: 66 Year
  Sex: Male

DRUGS (10)
  1. TACHOSIL [Suspect]
     Indication: SURGERY
     Dates: start: 20091214
  2. DILATREND (CARVEDILOL) [Concomitant]
  3. UNIPRIL (RAMIPRIL) [Concomitant]
  4. TRINIPLAS (GLYCERYL TRINITRATE) (10 MILLIGRAM, POULTICE OR PATCH) [Concomitant]
  5. APLACTIN (PRAVASTATIN SODIUM) (40 MILLIGRAM, TABLETS) [Concomitant]
  6. BIDIABE (BIDIABE) (TABLETS) [Concomitant]
  7. UNASCIN (ALL OTHER THERAPEUTIC PRODUCTS) (3 GRAM) [Concomitant]
  8. ANTRA (OMEPRAZOLE) (40 MILLIGRAM) [Concomitant]
  9. FLUIMUCIL (ACETYLCYSTEINE) [Concomitant]
  10. LASIX (FUROSEMIDE) [Concomitant]

REACTIONS (1)
  - Cerebrovascular accident [None]
